FAERS Safety Report 18984394 (Version 1)
Quarter: 2021Q1

REPORT INFORMATION
  Report Type: Spontaneous
  Country: GB (occurrence: GB)
  Receive Date: 20210309
  Receipt Date: 20210309
  Transmission Date: 20210420
  Serious: Yes (Disabling, Other)
  Sender: FDA-Public Use
  Company Number: GB-SUN PHARMACEUTICAL INDUSTRIES LTD-2021RR-284878

PATIENT
  Age: 88 Year
  Sex: Female

DRUGS (8)
  1. DONEPEZIL. [Suspect]
     Active Substance: DONEPEZIL
     Indication: DEMENTIA ALZHEIMER^S TYPE
     Dosage: 5 MILLIGRAM, DAILY
     Route: 048
  2. MEBEVERINE [Concomitant]
     Active Substance: MEBEVERINE
     Indication: ILL-DEFINED DISORDER
     Dosage: UNK
     Route: 065
  3. AMITRIPTYLINE [Concomitant]
     Active Substance: AMITRIPTYLINE
     Indication: ILL-DEFINED DISORDER
     Dosage: UNK
     Route: 065
  4. SIMVASTATIN. [Concomitant]
     Active Substance: SIMVASTATIN
     Indication: ILL-DEFINED DISORDER
     Dosage: UNK
     Route: 065
  5. CITALOPRAM [Concomitant]
     Active Substance: CITALOPRAM HYDROBROMIDE
     Indication: ILL-DEFINED DISORDER
     Dosage: UNK
     Route: 065
  6. GABAPENTIN. [Concomitant]
     Active Substance: GABAPENTIN
     Indication: ILL-DEFINED DISORDER
     Dosage: UNK
     Route: 065
  7. CANDESARTAN. [Concomitant]
     Active Substance: CANDESARTAN
     Indication: ILL-DEFINED DISORDER
     Dosage: UNK
     Route: 065
  8. NIFEDIPINE. [Concomitant]
     Active Substance: NIFEDIPINE
     Indication: ILL-DEFINED DISORDER
     Dosage: UNK
     Route: 065

REACTIONS (1)
  - Delirium [Recovered/Resolved]
